FAERS Safety Report 19471444 (Version 2)
Quarter: 2025Q2

REPORT INFORMATION
  Report Type: Spontaneous
  Country: ES (occurrence: ES)
  Receive Date: 20210628
  Receipt Date: 20250428
  Transmission Date: 20250716
  Serious: Yes (Hospitalization, Other)
  Sender: SUNOVION
  Company Number: ES-AEMPS-895631

PATIENT

DRUGS (3)
  1. ESLICARBAZEPINE ACETATE [Suspect]
     Active Substance: ESLICARBAZEPINE ACETATE
     Indication: Product used for unknown indication
     Dosage: 1 DOSAGE FORM, DAILY
     Route: 048
     Dates: start: 20190408, end: 20190530
  2. TORSEMIDE [Suspect]
     Active Substance: TORSEMIDE
     Indication: Hypertension
     Route: 048
     Dates: start: 20180323, end: 20190530
  3. CEFDITOREN [Suspect]
     Active Substance: CEFDITOREN
     Indication: Respiratory tract infection
     Dosage: 400 MILLIGRAM, 1X / DAY (1-0-0)
     Route: 048
     Dates: start: 20190513, end: 20190522

REACTIONS (2)
  - Tubulointerstitial nephritis [Recovered/Resolved]
  - Acute kidney injury [Recovered/Resolved]

NARRATIVE: CASE EVENT DATE: 20190516
